FAERS Safety Report 5922669-2 (Version None)
Quarter: 2008Q4

REPORT INFORMATION
  Report Type: 
  Country: None (occurrence: None)
  Receive Date: 20081017
  Receipt Date: 20081006
  Transmission Date: 20090506
  Serious: Yes (Hospitalization, Other)
  Sender: FDA-Public Use
  Company Number: US-BAYER-200811995BCC

PATIENT
  Age: 35 Year
  Sex: Male
  Weight: 113 kg

DRUGS (2)
  1. ALEVE (CAPLET) [Suspect]
     Indication: INFLUENZA LIKE ILLNESS
     Dosage: TOTAL DAILY DOSE: 440 MG  UNIT DOSE: 220 MG
     Route: 048
     Dates: start: 20080401, end: 20080521
  2. REBIF [Concomitant]
     Dosage: TOTAL DAILY DOSE: 44 ?G
     Route: 058

REACTIONS (17)
  - ANGIOEDEMA [None]
  - BURNING SENSATION [None]
  - CHEST DISCOMFORT [None]
  - CHOKING SENSATION [None]
  - DYSPNOEA [None]
  - ERYTHEMA [None]
  - FACE OEDEMA [None]
  - FLUSHING [None]
  - LIP SWELLING [None]
  - NASAL OEDEMA [None]
  - OEDEMA MOUTH [None]
  - PHARYNGEAL OEDEMA [None]
  - PRURITUS GENERALISED [None]
  - RASH GENERALISED [None]
  - SWOLLEN TONGUE [None]
  - URTICARIA [None]
  - WHEEZING [None]
